FAERS Safety Report 7332386-2 (Version None)
Quarter: 2011Q1

REPORT INFORMATION
  Report Type: 
  Country: None (occurrence: None)
  Receive Date: 20110304
  Receipt Date: 20110225
  Transmission Date: 20110831
  Serious: Yes (Other)
  Sender: FDA-Public Use
  Company Number: B0702260A

PATIENT
  Age: 81 Year
  Sex: Female
  Weight: 68 kg

DRUGS (5)
  1. REQUIP XL [Suspect]
     Route: 048
     Dates: start: 20110125
  2. REQUIP XL [Suspect]
     Indication: PARKINSON'S DISEASE
     Route: 048
     Dates: end: 20110120
  3. REQUIP XL [Suspect]
     Route: 048
     Dates: start: 20110121, end: 20110124
  4. CO-CODAMOL [Concomitant]
     Route: 048
  5. OMEPRAZOLE [Concomitant]
     Route: 048

REACTIONS (2)
  - WITHDRAWAL SYNDROME [None]
  - OBSESSIVE-COMPULSIVE PERSONALITY DISORDER [None]
